FAERS Safety Report 4408797-1 (Version None)
Quarter: 2004Q3

REPORT INFORMATION
  Report Type: 
  Country: None (occurrence: None)
  Receive Date: 20040727
  Receipt Date: 20040720
  Transmission Date: 20050211
  Serious: Yes (Hospitalization)
  Sender: FDA-Public Use
  Company Number: MY-MERCK-0407MYS00005

PATIENT
  Age: 65 Year
  Sex: Male

DRUGS (1)
  1. INVANZ [Suspect]
     Indication: DIABETIC FOOT INFECTION
     Route: 051
     Dates: start: 20040715, end: 20040719

REACTIONS (1)
  - EPILEPSY [None]
